FAERS Safety Report 6747307 (Version 1)
Quarter: 2020Q3

REPORT INFORMATION
  Report Type: Spontaneous
  Country: DE (occurrence: DE)
  Receive Date: 20080904
  Receipt Date: 20080904
  Transmission Date: 20201105
  Serious: Yes (Other)
  Sender: FDA-Public Use
  Company Number: PHHY2008DE19574

PATIENT

DRUGS (2)
  1. IBANDRONIC ACID. [Suspect]
     Active Substance: IBANDRONIC ACID
     Route: 042
  2. AREDIA [Suspect]
     Active Substance: PAMIDRONATE DISODIUM
     Indication: METASTASES TO BONE
     Dosage: 30 MG EVERY 4 WEEK
     Route: 042
     Dates: start: 2000

REACTIONS (5)
  - Breast operation [Recovered/Resolved]
  - Incorrect drug administration rate [None]
  - Neoplasm recurrence [Recovered/Resolved]
  - Discomfort [Recovered/Resolved]
  - Paraesthesia [Recovered/Resolved]

NARRATIVE: CASE EVENT DATE: 20010101
